FAERS Safety Report 5364644-5 (Version None)
Quarter: 2007Q2

REPORT INFORMATION
  Report Type: 
  Country: None (occurrence: None)
  Receive Date: 20070621
  Receipt Date: 20070615
  Transmission Date: 20071010
  Serious: Yes (Hospitalization)
  Sender: FDA-Public Use
  Company Number: FR-SP-E2007-03892

PATIENT
  Age: 24 Year
  Sex: Female
  Weight: 53 kg

DRUGS (1)
  1. TUBERTEST [Suspect]
     Indication: TUBERCULIN TEST
     Route: 023
     Dates: start: 20070514

REACTIONS (2)
  - CHILLS [None]
  - MALAISE [None]
